FAERS Safety Report 8933680 (Version 1)
Quarter: 2012Q4

REPORT INFORMATION
  Report Type: 
  Country: DE (occurrence: DE)
  Receive Date: 20121129
  Receipt Date: 20121129
  Transmission Date: 20130627
  Serious: Yes (Death, Life-Threatening, Hospitalization)
  Sender: FDA-Public Use
  Company Number: GXKR2012DE003628

PATIENT
  Age: 30 Year
  Sex: Male

DRUGS (4)
  1. CLOZAPINE [Suspect]
     Dosage: 12.5-250mg/day
     Route: 048
     Dates: start: 201204, end: 20120615
  2. CLOZAPINE [Suspect]
     Dosage: 300 mg, QD
     Route: 048
     Dates: start: 20120616, end: 20120703
  3. CLOZAPINE [Suspect]
     Dosage: 500 mg, QD
     Route: 048
     Dates: start: 20120704, end: 20120920
  4. METFORMIN [Suspect]
     Dosage: 2000 mg, QD
     Dates: start: 20120704, end: 20120920

REACTIONS (4)
  - Cardiac arrest [Fatal]
  - Brain injury [Fatal]
  - Confusional state [Fatal]
  - Circulatory collapse [Fatal]
